FAERS Safety Report 8458425-3 (Version None)
Quarter: 2012Q2

REPORT INFORMATION
  Report Type: 
  Country: None (occurrence: None)
  Receive Date: 20120622
  Receipt Date: 20120615
  Transmission Date: 20120825
  Serious: Yes (Other)
  Sender: FDA-Public Use
  Company Number: KR-BRISTOL-MYERS SQUIBB COMPANY-16668931

PATIENT
  Age: 65 Year
  Sex: Male

DRUGS (2)
  1. BARACLUDE [Suspect]
     Indication: HEPATIC CIRRHOSIS
     Dosage: 7 MONTHS AGO
  2. BARACLUDE [Suspect]
     Indication: HEPATITIS B
     Dosage: 7 MONTHS AGO

REACTIONS (1)
  - HEPATIC NEOPLASM MALIGNANT [None]
